FAERS Safety Report 4791231-X (Version None)
Quarter: 2005Q4

REPORT INFORMATION
  Report Type: 
  Country: None (occurrence: None)
  Receive Date: 20051007
  Receipt Date: 20041210
  Transmission Date: 20060501
  Serious: Yes (Hospitalization)
  Sender: FDA-Public Use
  Company Number: US-BOEHRINGER INGELHEIM PHARMACEUTICALS, INC.-2004-BP-13707BP

PATIENT
  Sex: Male
  Weight: 74 kg

DRUGS (14)
  1. TIPRANAVIR / RITONAVIR CAPSULES [Suspect]
     Indication: HIV INFECTION
     Dosage: TPV/R 1000/400 MG
     Route: 048
     Dates: start: 20040913
  2. VIREAD [Suspect]
     Indication: HIV INFECTION
     Route: 048
     Dates: start: 20040913
  3. FUZEON [Suspect]
     Indication: HIV INFECTION
     Route: 058
     Dates: start: 20040913
  4. VIREAD [Concomitant]
  5. FUZEON [Concomitant]
  6. FLOMAX [Concomitant]
  7. LASIX [Concomitant]
  8. ACYCLOVIR [Concomitant]
  9. SPIRONOLACTONE [Concomitant]
  10. DIGITEK [Concomitant]
  11. ALTACE [Concomitant]
  12. ALBUTEROL [Concomitant]
  13. PAXIL [Concomitant]
  14. NEURONTIN [Concomitant]

REACTIONS (10)
  - ASTHENIA [None]
  - BLOOD POTASSIUM INCREASED [None]
  - BLOOD PRESSURE DECREASED [None]
  - CHEST PAIN [None]
  - DEHYDRATION [None]
  - DIARRHOEA [None]
  - DIARRHOEA HAEMORRHAGIC [None]
  - LETHARGY [None]
  - NAUSEA [None]
  - VOMITING [None]
